FAERS Safety Report 14173867 (Version 1)
Quarter: 2017Q4

REPORT INFORMATION
  Report Type: Spontaneous
  Country: US (occurrence: US)
  Receive Date: 20171107
  Receipt Date: 20171107
  Transmission Date: 20180321
  Serious: No
  Sender: FDA-Public Use
  Company Number: None

PATIENT
  Age: 24 Year
  Sex: Female
  Weight: 67.5 kg

DRUGS (2)
  1. EMERGEN-C [Concomitant]
     Active Substance: VITAMINS
  2. SIBUTRAMINE (UNDECLARED INGREDIENT) [Suspect]
     Active Substance: SIBUTRAMINE
     Indication: WEIGHT CONTROL
     Route: 048

REACTIONS (3)
  - Hypoaesthesia [None]
  - Tachycardia [None]
  - Insomnia [None]

NARRATIVE: CASE EVENT DATE: 20171103
